FAERS Safety Report 16121852 (Version 1)
Quarter: 2019Q1

REPORT INFORMATION
  Report Type: Spontaneous
  Country: ES (occurrence: ES)
  Receive Date: 20190327
  Receipt Date: 20190327
  Transmission Date: 20190418
  Serious: Yes (Hospitalization, Other)
  Sender: FDA-Public Use
  Company Number: ES-ACCORD-009643

PATIENT
  Age: 66 Year
  Sex: Female

DRUGS (3)
  1. VALPROIC ACID. [Interacting]
     Active Substance: VALPROIC ACID
     Indication: BIPOLAR DISORDER
     Dosage: MEDIAN DOSE OF 1G DAILY AND DOSE INCREASED UPTO 800 MG/DAY
     Route: 048
  2. QUETIAPINE. [Suspect]
     Active Substance: QUETIAPINE
     Indication: MANIA
     Dosage: DOSE INCREASED UPTO 1500 MG/DAY
     Route: 048
  3. CLOPIDOGREL [Concomitant]
     Active Substance: CLOPIDOGREL BISULFATE

REACTIONS (3)
  - Parkinsonism [Recovered/Resolved]
  - Cognitive disorder [Recovered/Resolved]
  - Drug interaction [Unknown]
